FAERS Safety Report 6390228-6 (Version None)
Quarter: 2009Q4

REPORT INFORMATION
  Report Type: 
  Country: None (occurrence: None)
  Receive Date: 20091006
  Receipt Date: 20091001
  Transmission Date: 20100525
  Serious: Yes (Other)
  Sender: FDA-Public Use
  Company Number: A0810431A

PATIENT
  Age: 44 Year
  Sex: Female

DRUGS (2)
  1. TYKERB [Suspect]
     Indication: BREAST CANCER
     Dosage: 1250MG PER DAY
     Dates: start: 20090401
  2. CAPECITABINE [Suspect]
     Indication: BREAST CANCER
     Dosage: 7TAB SEE DOSAGE TEXT

REACTIONS (4)
  - DISEASE PROGRESSION [None]
  - LEUKOPENIA [None]
  - OSTEOSCLEROSIS [None]
  - TRANSAMINASES [None]
